FAERS Safety Report 6729781-9 (Version None)
Quarter: 2010Q2

REPORT INFORMATION
  Report Type: 
  Country: None (occurrence: None)
  Receive Date: 20100513
  Receipt Date: 20100504
  Transmission Date: 20101027
  Serious: Yes (Other)
  Sender: FDA-Public Use
  Company Number: 009845

PATIENT
  Sex: Female

DRUGS (2)
  1. KEPPRA [Suspect]
     Dosage: (500 MG BID)
  2. FOLIUMZUUR [Concomitant]

REACTIONS (9)
  - ABDOMINAL PAIN UPPER [None]
  - ALTERED STATE OF CONSCIOUSNESS [None]
  - AURA [None]
  - DRUG EXPOSURE DURING PREGNANCY [None]
  - MUSCLE SPASMS [None]
  - PARTIAL SEIZURES [None]
  - PERSEVERATION [None]
  - PREGNANCY [None]
  - SCREAMING [None]
